FAERS Safety Report 10025621 (Version 1)
Quarter: 2014Q1

REPORT INFORMATION
  Report Type: Spontaneous
  Country: US (occurrence: None)
  Receive Date: 20140318
  Receipt Date: 20140318
  Transmission Date: 20141002
  Serious: Yes (Hospitalization)
  Sender: FDA-Public Use
  Company Number: 2014P1001991

PATIENT
  Age: 62 Year
  Sex: Female

DRUGS (6)
  1. RIFAMPIN [Suspect]
     Indication: LATENT TUBERCULOSIS
  2. METOPROLOL [Concomitant]
  3. ATORVASTATIN [Concomitant]
  4. CALCIUM [Concomitant]
  5. VITAMIN D [Concomitant]
  6. MULTIVITAMIN [Concomitant]

REACTIONS (4)
  - Angioedema [None]
  - Pruritus [None]
  - Rash [None]
  - Drug ineffective [None]
